FAERS Safety Report 7149422-9 (Version None)
Quarter: 2010Q4

REPORT INFORMATION
  Report Type: 
  Country: None (occurrence: None)
  Receive Date: 20101209
  Receipt Date: 20101006
  Transmission Date: 20110411
  Serious: No
  Sender: FDA-Public Use
  Company Number: US-KINGPHARMUSA00001-K201001240

PATIENT
  Age: 30 Year
  Sex: Male
  Weight: 72.562 kg

DRUGS (1)
  1. EMBEDA [Suspect]
     Dosage: UNK
     Route: 042
     Dates: start: 20101001, end: 20101001

REACTIONS (19)
  - CHILLS [None]
  - CONVULSION [None]
  - CRYING [None]
  - DRUG ABUSE [None]
  - DRUG DIVERSION [None]
  - DRUG WITHDRAWAL SYNDROME [None]
  - DYSARTHRIA [None]
  - DYSKINESIA [None]
  - DYSPNOEA [None]
  - FAECAL INCONTINENCE [None]
  - HALLUCINATION [None]
  - HYPERHIDROSIS [None]
  - HYPOVENTILATION [None]
  - MEMORY IMPAIRMENT [None]
  - MUSCLE SPASMS [None]
  - PAIN [None]
  - RESPIRATORY RATE INCREASED [None]
  - TREMOR [None]
  - VOMITING [None]
